FAERS Safety Report 8081198-3 (Version None)
Quarter: 2012Q1

REPORT INFORMATION
  Report Type: 
  Country: None (occurrence: None)
  Receive Date: 20120130
  Receipt Date: 20120120
  Transmission Date: 20120608
  Serious: Yes (Hospitalization)
  Sender: FDA-Public Use
  Company Number: GB-GLAXOSMITHKLINE-B0778006A

PATIENT
  Sex: Male
  Weight: 87.4 kg

DRUGS (5)
  1. OFATUMUMAB [Suspect]
     Indication: RICHTER'S SYNDROME
     Dosage: 300MG CYCLIC
     Route: 042
     Dates: start: 20120116
  2. PREDNISOLONE [Suspect]
     Indication: RICHTER'S SYNDROME
     Dosage: 25MG CYCLIC
     Route: 048
     Dates: start: 20120116
  3. VINCRISTINE [Suspect]
     Indication: RICHTER'S SYNDROME
     Dosage: 1MG CYCLIC
     Route: 042
     Dates: start: 20120116
  4. DOXORUBICIN HCL [Suspect]
     Indication: RICHTER'S SYNDROME
     Dosage: 50MG CYCLIC
     Route: 042
     Dates: start: 20120116
  5. CYCLOPHOSPHAMIDE [Suspect]
     Indication: RICHTER'S SYNDROME
     Dosage: 1600MG CYCLIC
     Route: 042
     Dates: start: 20120116

REACTIONS (2)
  - ANAEMIA [None]
  - INFECTION [None]
